FAERS Safety Report 10040374 (Version 1)
Quarter: 2014Q1

REPORT INFORMATION
  Report Type: Spontaneous
  Country: US (occurrence: US)
  Receive Date: 20140327
  Receipt Date: 20140327
  Transmission Date: 20141002
  Serious: No
  Sender: FDA-Public Use
  Company Number: US-BIOGENIDEC-2014BI028146

PATIENT
  Age: 37 Year
  Sex: Male

DRUGS (12)
  1. AVONEX [Suspect]
     Indication: MULTIPLE SCLEROSIS
     Route: 030
     Dates: start: 20010816
  2. COPAXONE [Concomitant]
     Indication: MULTIPLE SCLEROSIS
     Route: 058
  3. ALBUTEROL [Concomitant]
  4. IPRATROPIUM [Concomitant]
  5. ENOXAPARIN [Concomitant]
  6. HYDROCORTISONE [Concomitant]
  7. LACTOBACILLUS [Concomitant]
  8. PANTOPRAZOLE [Concomitant]
  9. ZOSYN [Concomitant]
  10. SENNA [Concomitant]
  11. FLUCONAZOLE [Concomitant]
  12. TYLENOL [Concomitant]

REACTIONS (1)
  - Adverse drug reaction [Unknown]
